FAERS Safety Report 10366889 (Version 2)
Quarter: 2015Q1

REPORT INFORMATION
  Report Type: Spontaneous
  Country: DE (occurrence: DE)
  Receive Date: 20140807
  Receipt Date: 20150319
  Transmission Date: 20150720
  Serious: Yes (Other)
  Sender: FDA-Public Use
  Company Number: DE-UCBSA-2014007887

PATIENT
  Age: 63 Year
  Sex: Female

DRUGS (2)
  1. PANTOZOL [Concomitant]
     Active Substance: PANTOPRAZOLE SODIUM
     Dosage: UNK
  2. CIMZIA [Suspect]
     Active Substance: CERTOLIZUMAB PEGOL
     Indication: RHEUMATOID ARTHRITIS
     Dosage: UNK
     Dates: end: 201404

REACTIONS (1)
  - Agranulocytosis [Recovering/Resolving]

NARRATIVE: CASE EVENT DATE: 201404
